FAERS Safety Report 7968717-X (Version None)
Quarter: 2011Q4

REPORT INFORMATION
  Report Type: 
  Country: None (occurrence: None)
  Receive Date: 20111208
  Receipt Date: 20111128
  Transmission Date: 20120403
  Serious: Yes (Other)
  Sender: FDA-Public Use
  Company Number: 2011P1013445

PATIENT
  Age: 70 Year
  Sex: Male

DRUGS (1)
  1. CAPTOPRIL [Suspect]
     Indication: HYPERTENSION

REACTIONS (1)
  - PEMPHIGUS [None]
